FAERS Safety Report 13867385 (Version 1)
Quarter: 2017Q3

REPORT INFORMATION
  Report Type: Report from Study
  Country: CA (occurrence: CA)
  Receive Date: 20170814
  Receipt Date: 20170814
  Transmission Date: 20171127
  Serious: Yes (Other)
  Sender: FDA-Public Use
  Company Number: CA-DEPOMED, INC.-CA-2017DEP001641

PATIENT
  Age: 42 Year
  Sex: Female
  Weight: 81 kg

DRUGS (4)
  1. REMICADE [Suspect]
     Active Substance: INFLIXIMAB
     Indication: ANKYLOSING SPONDYLITIS
     Dosage: 500 MG, UNK, Q6WK
     Route: 042
  2. METHOTREXATE. [Suspect]
     Active Substance: METHOTREXATE
     Indication: PRODUCT USED FOR UNKNOWN INDICATION
     Dosage: UNK
     Route: 065
  3. DICLOFENAC POTASSIUM. [Suspect]
     Active Substance: DICLOFENAC POTASSIUM
     Indication: PRODUCT USED FOR UNKNOWN INDICATION
     Dosage: UNK
     Route: 065
  4. REMICADE [Suspect]
     Active Substance: INFLIXIMAB
     Dosage: 500 MG, UNK, Q6WK
     Route: 065

REACTIONS (5)
  - Arthralgia [Recovering/Resolving]
  - Abdominal pain [Recovering/Resolving]
  - Aspartate aminotransferase increased [Recovering/Resolving]
  - Drug hypersensitivity [Recovering/Resolving]
  - Alanine aminotransferase increased [Recovering/Resolving]
